FAERS Safety Report 17889771 (Version 1)
Quarter: 2020Q2

REPORT INFORMATION
  Report Type: Spontaneous
  Country: US (occurrence: US)
  Receive Date: 20200612
  Receipt Date: 20200612
  Transmission Date: 20200714
  Serious: Yes (Hospitalization)
  Sender: FDA-Public Use
  Company Number: US-MYLANLABS-2020M1055277

PATIENT
  Age: 88 Year
  Sex: Male

DRUGS (3)
  1. ALTEPLASE. [Suspect]
     Active Substance: ALTEPLASE
     Indication: DRUG THERAPY
     Dosage: ULTRASOUND GUIDEDPLACEMENT OF BILATERAL ANTECUBITAL FOSSA CATHETERS WAS OBTAINED BY APHYSICIAN. ..
     Route: 065
  2. LEVETIRACETAM. [Suspect]
     Active Substance: LEVETIRACETAM
     Indication: SEIZURE PROPHYLAXIS
     Dosage: ADMINISTERED IN THE RIGHT IV LINE
     Route: 042
  3. NICARDIPINE [Suspect]
     Active Substance: NICARDIPINE
     Indication: BLOOD PRESSURE INCREASED
     Dosage: THROUGH THE RIGHT ANTECUBITAL FOSSA
     Route: 065

REACTIONS (2)
  - Administration site extravasation [Unknown]
  - Infusion site injury [Unknown]
